FAERS Safety Report 6579048-7 (Version None)
Quarter: 2010Q1

REPORT INFORMATION
  Report Type: 
  Country: None (occurrence: None)
  Receive Date: 20100212
  Receipt Date: 20100209
  Transmission Date: 20100710
  Serious: Yes (Life-Threatening, Other)
  Sender: FDA-Public Use
  Company Number: PHEH2009US16500

PATIENT
  Sex: Female

DRUGS (5)
  1. EXELON [Suspect]
     Dosage: 4.6 MG
     Route: 062
     Dates: start: 20091109, end: 20091113
  2. ARICEPT [Concomitant]
     Dosage: UNK
     Dates: start: 19990101
  3. METFORMIN HCL [Concomitant]
     Dosage: 2000 MG, UNK
  4. GLIPIZIDE [Concomitant]
     Dosage: 10 MG, UNK
  5. ACTOS [Concomitant]

REACTIONS (30)
  - ANGER [None]
  - ASTHENIA [None]
  - CELLULITIS [None]
  - CHEST PAIN [None]
  - CHILLS [None]
  - CONDITION AGGRAVATED [None]
  - COUGH [None]
  - DIARRHOEA [None]
  - ERYTHEMA [None]
  - FEELING ABNORMAL [None]
  - FEELING HOT [None]
  - GAIT DISTURBANCE [None]
  - GALACTORRHOEA [None]
  - GASTRIC DISORDER [None]
  - HEART RATE IRREGULAR [None]
  - HYPERHIDROSIS [None]
  - HYPERSENSITIVITY [None]
  - MALAISE [None]
  - MEMORY IMPAIRMENT [None]
  - MIGRAINE [None]
  - NAUSEA [None]
  - NERVOUSNESS [None]
  - OEDEMA PERIPHERAL [None]
  - PAIN IN EXTREMITY [None]
  - PRURITUS [None]
  - RASH GENERALISED [None]
  - SCAB [None]
  - SKIN EXFOLIATION [None]
  - URTICARIA [None]
  - VOMITING [None]
